FAERS Safety Report 8649310 (Version 3)
Quarter: 2013Q3

REPORT INFORMATION
  Report Type: Report from Study
  Country: US (occurrence: US)
  Receive Date: 20120705
  Receipt Date: 20130723
  Transmission Date: 20140515
  Serious: Yes (Hospitalization)
  Sender: FDA-Public Use
  Company Number: US-UCBSA-8054538

PATIENT
  Age: 77 Year
  Sex: Female
  Weight: 46 kg

DRUGS (15)
  1. CIMZIA [Suspect]
     Indication: CROHN^S DISEASE
     Route: 058
     Dates: start: 20090831, end: 2009
  2. PREDNISONE [Concomitant]
     Indication: CROHN^S DISEASE
     Dosage: 20MG PO DAILY
     Route: 048
     Dates: start: 20090105, end: 2009
  3. PREDNISONE [Concomitant]
     Indication: CROHN^S DISEASE
     Dosage: 20MG PO DAILY TAPERING SCHEDULE
     Route: 048
     Dates: start: 20091027, end: 20091114
  4. CALCIUM PLUS D [Concomitant]
  5. MULTIVITAMIN [Concomitant]
     Indication: SUPPLEMENTATION THERAPY
     Dosage: 1 PO DAILY
     Route: 048
     Dates: start: 2002
  6. ACETAMINOPHEN [Concomitant]
     Indication: PAIN
     Dosage: 1-2 AS NEEDED 1000 MG
     Route: 048
  7. CALCIUM CITRATE/VITD3 [Concomitant]
     Indication: OSTEOPOROSIS
     Dosage: 200-500 MG UNIT
     Route: 048
     Dates: start: 2006
  8. CALCIUM CITRATE/VITD3 [Concomitant]
     Indication: OSTEOPOROSIS
     Dosage: 250-200 MG
     Dates: start: 20091210
  9. COUMADIN [Concomitant]
     Indication: PROPHYLAXIS
     Dosage: VARIABLE DOSE
     Route: 048
     Dates: start: 2009
  10. COUMADIN [Concomitant]
     Indication: DEEP VEIN THROMBOSIS
     Dosage: VARIABLE DOSE
     Route: 048
     Dates: start: 2009
  11. COUMADIN [Concomitant]
     Indication: PULMONARY EMBOLISM
     Dosage: VARIABLE DOSE
     Route: 048
     Dates: start: 2009
  12. VASOTEC [Concomitant]
     Dosage: 2.5 MG
     Route: 048
  13. CALCIUM/VITD1 [Concomitant]
     Route: 048
     Dates: start: 2006
  14. AZATHIOPRINE [Concomitant]
     Indication: CROHN^S DISEASE
     Dates: start: 20090128, end: 20090319
  15. AZATHIOPRINE [Concomitant]
     Indication: CROHN^S DISEASE
     Dates: start: 20090421, end: 20090921

REACTIONS (4)
  - Pulmonary embolism [Recovered/Resolved]
  - Large intestine perforation [Recovered/Resolved]
  - Deep vein thrombosis [Recovered/Resolved]
  - Cardiomyopathy [Recovered/Resolved]
